FAERS Safety Report 4387821-9 (Version None)
Quarter: 2004Q2

REPORT INFORMATION
  Report Type: 
  Country: None (occurrence: None)
  Receive Date: 20040630
  Receipt Date: 20040519
  Transmission Date: 20050107
  Serious: Yes (Disabling, Other)
  Sender: FDA-Public Use
  Company Number: PHBS2004JP06714

PATIENT
  Age: 59 Year
  Sex: Female

DRUGS (2)
  1. NEORAL [Suspect]
     Indication: STEM CELL TRANSPLANT
     Route: 048
  2. PREDONINE [Suspect]

REACTIONS (8)
  - CONJUNCTIVAL HYPERAEMIA [None]
  - GRAFT VERSUS HOST DISEASE [None]
  - INTRAOCULAR PRESSURE INCREASED [None]
  - MEIBOMIAN GLAND DISCHARGE [None]
  - OPEN ANGLE GLAUCOMA [None]
  - PUNCTATE KERATITIS [None]
  - TRABECULECTOMY [None]
  - VISUAL FIELD DEFECT [None]
